FAERS Safety Report 23218992 (Version 1)
Quarter: 2023Q4

REPORT INFORMATION
  Report Type: Spontaneous
  Country: GB (occurrence: None)
  Receive Date: 20231122
  Receipt Date: 20231122
  Transmission Date: 20240109
  Serious: Yes (Other)
  Sender: FDA-Public Use
  Company Number: 2023A259078

PATIENT
  Age: 62 Year
  Sex: Male

DRUGS (1)
  1. ROSUVASTATIN [Suspect]
     Active Substance: ROSUVASTATIN
     Indication: Acute myocardial infarction
     Dosage: 20
     Dates: start: 202305

REACTIONS (5)
  - Muscle spasms [Unknown]
  - Myalgia [Unknown]
  - Mobility decreased [Unknown]
  - Gait disturbance [Unknown]
  - Dystonia [Unknown]
